FAERS Safety Report 9285502 (Version 1)
Quarter: 2013Q2

REPORT INFORMATION
  Report Type: Spontaneous
  Country: US (occurrence: US)
  Receive Date: 20130513
  Receipt Date: 20130513
  Transmission Date: 20140414
  Serious: Yes (Hospitalization)
  Sender: FDA-Public Use
  Company Number: US-MYLANLABS-2013S1009643

PATIENT
  Age: 68 Year
  Sex: Male
  Weight: 95 kg

DRUGS (12)
  1. CALCIUM CARBONATE [Suspect]
     Indication: ABDOMINAL DISCOMFORT
     Dosage: 15-20 TABLETS FOR 4-5 DAYS; DAILY DOSE OF ELEMENTAL CALCIUM:4.5-6.0G
     Route: 048
  2. VALSARTAN AND HYDROCHLOROTHIAZIDE TABLETS [Interacting]
     Indication: DIURETIC THERAPY
     Dosage: 320MG VALSARTAN/25MG HCTZ; ONCE DAILY
     Route: 065
  3. VITAMIN D [Interacting]
     Dosage: 5400 IU DAILY
     Route: 065
  4. AMLODIPINE [Concomitant]
     Route: 065
  5. ASPIRIN [Concomitant]
     Route: 065
  6. CEFDINIR [Concomitant]
     Indication: SINUSITIS
     Route: 065
  7. COLESEVELAM [Concomitant]
     Route: 065
  8. EZETIMIBE [Concomitant]
     Dosage: 10MG DAILY
     Route: 065
  9. LANOXIN [Concomitant]
     Dosage: 0.25MG DAILY
     Route: 065
  10. VARDENAFIL [Concomitant]
     Route: 065
  11. CALCIUM [Concomitant]
     Dosage: 1245MG DAILY
     Route: 065
  12. MAGNESIUM [Concomitant]
     Dosage: 452MG DAILY
     Route: 065

REACTIONS (5)
  - Hypercalcaemia [Unknown]
  - Pancreatitis [Unknown]
  - Abdominal compartment syndrome [Unknown]
  - Overdose [Unknown]
  - Drug interaction [Unknown]
